FAERS Safety Report 7195359-9 (Version None)
Quarter: 2010Q4

REPORT INFORMATION
  Report Type: 
  Country: None (occurrence: None)
  Receive Date: 20101223
  Receipt Date: 20100930
  Transmission Date: 20110411
  Serious: No
  Sender: FDA-Public Use
  Company Number: US-AMGEN-KDL442513

PATIENT

DRUGS (2)
  1. ENBREL [Suspect]
     Indication: RHEUMATOID ARTHRITIS
     Dosage: 50 MG, QWK
     Route: 058
     Dates: start: 20100301
  2. METHOTREXATE [Concomitant]
     Dosage: 25 MG, QWK
     Route: 048

REACTIONS (6)
  - MALAISE [None]
  - MASS [None]
  - NERVOUSNESS [None]
  - PRURITUS [None]
  - SKIN ULCER [None]
  - WEIGHT DECREASED [None]
